FAERS Safety Report 11346936 (Version 1)
Quarter: 2015Q3

REPORT INFORMATION
  Report Type: Spontaneous
  Country: US (occurrence: US)
  Receive Date: 20150803
  Receipt Date: 20150803
  Transmission Date: 20151125
  Serious: Yes (Other)
  Sender: FDA-Public Use
  Company Number: US-ELI_LILLY_AND_COMPANY-US201102003365

PATIENT
  Age: 24 Year
  Sex: Male

DRUGS (1)
  1. ZYPREXA [Suspect]
     Active Substance: OLANZAPINE
     Dosage: 30 MG, DAILY (1/D)

REACTIONS (6)
  - Mental disorder [Unknown]
  - Diabetes mellitus [Unknown]
  - Weight increased [Unknown]
  - Intentional product misuse [Recovered/Resolved]
  - Feeling abnormal [Unknown]
  - Prescribed overdose [Recovered/Resolved]
